FAERS Safety Report 7105820-0 (Version None)
Quarter: 2010Q4

REPORT INFORMATION
  Report Type: 
  Country: None (occurrence: None)
  Receive Date: 20101116
  Receipt Date: 20101105
  Transmission Date: 20110411
  Serious: Yes (Other)
  Sender: FDA-Public Use
  Company Number: US-JNJFOC-20101102528

PATIENT
  Sex: Female
  Weight: 77.11 kg

DRUGS (8)
  1. REMICADE [Suspect]
     Indication: RHEUMATOID ARTHRITIS
     Route: 042
  2. REMICADE [Suspect]
     Route: 042
  3. PREDNISONE [Concomitant]
     Indication: RHEUMATOID ARTHRITIS
     Dosage: ONE 10 MG. TABLET + THREE 1MG. TABLETS
     Route: 048
  4. DIOVAN [Concomitant]
     Indication: HYPERTENSION
     Route: 048
  5. PLAQUENIL [Concomitant]
     Indication: RHEUMATOID ARTHRITIS
     Route: 048
  6. ESTROPIPATE [Concomitant]
     Indication: HORMONE THERAPY
     Route: 048
  7. TRAMADOL HCL [Concomitant]
     Indication: PAIN
     Route: 065
  8. PREMARIN [Concomitant]
     Dosage: 1/2 OF APPLICATOR (1.25 MG PER APPLICATOR)
     Route: 067

REACTIONS (4)
  - CHOKING [None]
  - FEELING ABNORMAL [None]
  - INFUSION RELATED REACTION [None]
  - NAUSEA [None]
